FAERS Safety Report 6199289-0 (Version None)
Quarter: 2009Q2

REPORT INFORMATION
  Report Type: 
  Country: None (occurrence: None)
  Receive Date: 20090522
  Receipt Date: 20090511
  Transmission Date: 20091009
  Serious: Yes (Hospitalization)
  Sender: FDA-Public Use
  Company Number: JP-PFIZER INC-2009188570

PATIENT
  Age: 62 Year

DRUGS (2)
  1. SUNITINIB MALATE [Suspect]
     Indication: RENAL CELL CARCINOMA
     Dosage: 50 MG, 1X/DAY
     Route: 048
     Dates: start: 20090305
  2. BLOPRESS [Concomitant]
     Route: 048

REACTIONS (4)
  - ALTERED STATE OF CONSCIOUSNESS [None]
  - HYPONATRAEMIA [None]
  - PLATELET COUNT DECREASED [None]
  - PYREXIA [None]
